FAERS Safety Report 12985513 (Version 1)
Quarter: 2016Q4

REPORT INFORMATION
  Report Type: Spontaneous
  Country: ES (occurrence: ES)
  Receive Date: 20161130
  Receipt Date: 20161130
  Transmission Date: 20170207
  Serious: Yes (Hospitalization, Other)
  Sender: FDA-Public Use
  Company Number: ES-AMGEN-ESPSP2016167385

PATIENT
  Age: 86 Year

DRUGS (8)
  1. KONAKION [Concomitant]
     Active Substance: PHYTONADIONE
     Dosage: 10 MG/ML, UNK
     Route: 048
     Dates: start: 2013
  2. ORFIDAL [Concomitant]
     Active Substance: LORAZEPAM
     Dosage: UNK
     Dates: start: 2013
  3. PROLIA [Suspect]
     Active Substance: DENOSUMAB
     Indication: OSTEOPOROSIS
     Dosage: 60 MG, UNK
     Route: 065
     Dates: start: 20150515, end: 20160421
  4. OMEPRAZOL [Suspect]
     Active Substance: OMEPRAZOLE
     Indication: PRODUCT USED FOR UNKNOWN INDICATION
     Dosage: 20 MG, UNK
     Route: 065
     Dates: start: 2013
  5. FERPLEX [Concomitant]
     Dosage: 40 MG, UNK
     Dates: start: 2014
  6. ESCITALOPRAM STADA [Concomitant]
     Active Substance: ESCITALOPRAM OXALATE
     Dosage: 15 MG, UNK
     Dates: start: 2013
  7. ACFOL [Concomitant]
     Active Substance: FOLIC ACID
     Dosage: 5 MG, UNK
     Route: 065
     Dates: start: 2013
  8. NOLOTIL [Concomitant]
     Active Substance: METAMIZOLE
     Dosage: 575 MG, UNK
     Dates: start: 2013

REACTIONS (2)
  - Hip fracture [Unknown]
  - Hypocalcaemia [Recovered/Resolved]

NARRATIVE: CASE EVENT DATE: 20160330
